FAERS Safety Report 8895480 (Version 3)
Quarter: 2013Q1

REPORT INFORMATION
  Report Type: Spontaneous
  Country: US (occurrence: US)
  Receive Date: 20121107
  Receipt Date: 20130123
  Transmission Date: 20140127
  Serious: No
  Sender: FDA-Public Use
  Company Number: US-B.I. PHARMACEUTICALS,INC./RIDGEFIELD-2012-BP-27283BP

PATIENT
  Sex: Female
  Weight: 82 kg

DRUGS (2)
  1. COMBIVENT [Suspect]
     Indication: EMPHYSEMA
     Route: 055
  2. ALBUTEROL [Concomitant]
     Route: 055

REACTIONS (6)
  - Respiratory tract congestion [Not Recovered/Not Resolved]
  - Cough [Not Recovered/Not Resolved]
  - Increased upper airway secretion [Not Recovered/Not Resolved]
  - Visual acuity reduced [Not Recovered/Not Resolved]
  - Ear pain [Not Recovered/Not Resolved]
  - Product quality issue [Recovered/Resolved]
